FAERS Safety Report 6217728-3 (Version None)
Quarter: 2009Q2

REPORT INFORMATION
  Report Type: 
  Country: None (occurrence: None)
  Receive Date: 20090608
  Receipt Date: 20090601
  Transmission Date: 20091009
  Serious: Yes (Disabling)
  Sender: FDA-Public Use
  Company Number: CO-BAYER-200916917LA

PATIENT
  Age: 43 Year
  Sex: Female
  Weight: 55 kg

DRUGS (1)
  1. AVELOX [Suspect]
     Indication: BREAST ABSCESS
     Route: 048
     Dates: start: 20090109, end: 20090120

REACTIONS (2)
  - PARESIS [None]
  - SCIATIC NERVE NEUROPATHY [None]
